FAERS Safety Report 9549393 (Version 1)
Quarter: 2013Q3

REPORT INFORMATION
  Report Type: Spontaneous
  Country: US (occurrence: US)
  Receive Date: 20130924
  Receipt Date: 20130924
  Transmission Date: 20140515
  Serious: Yes (Other)
  Sender: FDA-Public Use
  Company Number: US-009507513-1210USA000524

PATIENT
  Age: 54 Year
  Sex: Male

DRUGS (1)
  1. JANUVIA [Suspect]
     Dosage: 1 PER DAY
     Route: 048

REACTIONS (4)
  - Muscle twitching [Unknown]
  - Muscle spasms [Unknown]
  - Bone pain [Unknown]
  - Myalgia [Unknown]
